FAERS Safety Report 9999123 (Version 1)
Quarter: 2014Q1

REPORT INFORMATION
  Report Type: Spontaneous
  Country: US (occurrence: None)
  Receive Date: 20140311
  Receipt Date: 20140311
  Transmission Date: 20141002
  Serious: Yes (Other)
  Sender: FDA-Public Use
  Company Number: None

PATIENT
  Age: 57 Year
  Sex: Female
  Weight: 45.36 kg

DRUGS (1)
  1. ACTONEL 35MG WARNER CHILCOTT [Suspect]
     Indication: OSTEOPOROSIS
     Route: 048
     Dates: start: 20140125, end: 20140301

REACTIONS (3)
  - Headache [None]
  - Migraine [None]
  - Migraine with aura [None]
